FAERS Safety Report 23512895 (Version 1)
Quarter: 2024Q1

REPORT INFORMATION
  Report Type: Spontaneous
  Country: GB (occurrence: GB)
  Receive Date: 20240212
  Receipt Date: 20240212
  Transmission Date: 20240410
  Serious: Yes (Other)
  Sender: FDA-Public Use
  Company Number: None

PATIENT
  Age: 67 Year
  Sex: Female
  Weight: 88.9 kg

DRUGS (6)
  1. CIPROFLOXACIN [Suspect]
     Active Substance: CIPROFLOXACIN
     Indication: Diverticulitis
     Dosage: ONE WEEK OF TABLETS ON FOUR OCCASIONS OVER TWO YEARS
     Route: 048
     Dates: start: 201303, end: 201501
  2. MAGNESIUM CITRATE [Concomitant]
     Active Substance: MAGNESIUM CITRATE
     Dosage: UNK
     Route: 065
  3. ACETAMINOPHEN [Concomitant]
     Active Substance: ACETAMINOPHEN
     Dosage: UNK
     Route: 065
  4. HERBALS\TURMERIC [Concomitant]
     Active Substance: HERBALS\TURMERIC
     Dosage: UNK
     Route: 065
  5. ALPHA LIPOIC ACID [Concomitant]
     Active Substance: .ALPHA.-LIPOIC ACID
     Dosage: UNK
     Route: 065
  6. FRUCTO-OLIGOSACCHARIDE [Concomitant]
     Dosage: UNK
     Route: 065

REACTIONS (23)
  - Peripheral swelling [Not Recovered/Not Resolved]
  - Inflammation [Recovering/Resolving]
  - Influenza like illness [Recovering/Resolving]
  - Crying [Recovering/Resolving]
  - Muscle twitching [Unknown]
  - Brain fog [Not Recovered/Not Resolved]
  - Pain [Unknown]
  - Tendon injury [Unknown]
  - Malaise [Recovering/Resolving]
  - Muscle spasms [Unknown]
  - Rash papular [Recovering/Resolving]
  - Arthralgia [Not Recovered/Not Resolved]
  - Asthenia [Recovering/Resolving]
  - Skin burning sensation [Recovering/Resolving]
  - Erythema [Recovering/Resolving]
  - Joint swelling [Not Recovered/Not Resolved]
  - Tendonitis [Not Recovered/Not Resolved]
  - Fatigue [Not Recovered/Not Resolved]
  - Myalgia [Unknown]
  - Pain in extremity [Unknown]
  - Paraesthesia [Unknown]
  - Tendon pain [Recovering/Resolving]
  - Back pain [Recovering/Resolving]

NARRATIVE: CASE EVENT DATE: 20140101
